FAERS Safety Report 7819712-2 (Version None)
Quarter: 2011Q4

REPORT INFORMATION
  Report Type: 
  Country: None (occurrence: None)
  Receive Date: 20111018
  Receipt Date: 20110110
  Transmission Date: 20120403
  Serious: No
  Sender: FDA-Public Use
  Company Number: US-ASTRAZENECA-2011SE01542

PATIENT
  Sex: Female

DRUGS (1)
  1. SYMBICORT [Suspect]
     Dosage: 160/4.5 MCG, ONE PUFF TWICE DAILY
     Route: 055

REACTIONS (3)
  - ADVERSE EVENT [None]
  - APHONIA [None]
  - DRUG DOSE OMISSION [None]
